FAERS Safety Report 21408494 (Version 2)
Quarter: 2022Q4

REPORT INFORMATION
  Report Type: Spontaneous
  Country: GR (occurrence: GR)
  Receive Date: 20221004
  Receipt Date: 20221027
  Transmission Date: 20230112
  Serious: Yes (Death)
  Sender: FDA-Public Use
  Company Number: GR-GILEAD-2022-0599913

PATIENT
  Sex: Female

DRUGS (1)
  1. TRODELVY [Suspect]
     Active Substance: SACITUZUMAB GOVITECAN-HZIY
     Indication: Product used for unknown indication
     Dosage: ONLY 1 DOSE, 3RD LINE TREATMENT
     Route: 065
     Dates: start: 20220720, end: 20220720

REACTIONS (1)
  - General physical health deterioration [Fatal]
